FAERS Safety Report 13027827 (Version 1)
Quarter: 2016Q4

REPORT INFORMATION
  Report Type: Spontaneous
  Country: US (occurrence: US)
  Receive Date: 20161214
  Receipt Date: 20161214
  Transmission Date: 20170207
  Serious: No
  Sender: FDA-Public Use
  Company Number: US-SHIRE-US201618243

PATIENT
  Sex: Male

DRUGS (4)
  1. VYVANSE [Suspect]
     Active Substance: LISDEXAMFETAMINE DIMESYLATE
     Dosage: 140 MG (TRIED TWO), 1X/DAY:QD
     Route: 048
     Dates: start: 2016
  2. VYVANSE [Suspect]
     Active Substance: LISDEXAMFETAMINE DIMESYLATE
     Dosage: UNK (ONE AND A HALF), 1X/DAY:QD
     Route: 048
     Dates: start: 2016
  3. VYVANSE [Suspect]
     Active Substance: LISDEXAMFETAMINE DIMESYLATE
     Dosage: UNK(AS LITTLE AS HALF A DOSE), UNKNOWN
     Route: 048
  4. VYVANSE [Suspect]
     Active Substance: LISDEXAMFETAMINE DIMESYLATE
     Indication: ATTENTION DEFICIT/HYPERACTIVITY DISORDER
     Dosage: 70 MG, 1X/DAY:QD
     Route: 048

REACTIONS (6)
  - Drug ineffective [Unknown]
  - Drug tolerance [Unknown]
  - Incorrect dose administered [Unknown]
  - Product quality issue [Unknown]
  - Disturbance in attention [Unknown]
  - Overdose [Unknown]

NARRATIVE: CASE EVENT DATE: 2016
